FAERS Safety Report 16143157 (Version 1)
Quarter: 2019Q2

REPORT INFORMATION
  Report Type: Spontaneous
  Country: NO (occurrence: NO)
  Receive Date: 20190401
  Receipt Date: 20190401
  Transmission Date: 20190711
  Serious: Yes (Other)
  Sender: FDA-Public Use
  Company Number: NO-TEVA-2019-NO-1031491

PATIENT
  Age: 64 Year
  Sex: Female
  Weight: 53 kg

DRUGS (1)
  1. PREDNISOLON [Suspect]
     Active Substance: PREDNISOLONE
     Indication: POLYMYALGIA RHEUMATICA
     Dosage: 15 MILLIGRAM DAILY;
     Dates: start: 201611, end: 201712

REACTIONS (7)
  - Stress [Not Recovered/Not Resolved]
  - Memory impairment [Recovering/Resolving]
  - Muscle atrophy [Not Recovered/Not Resolved]
  - Skin atrophy [Not Recovered/Not Resolved]
  - Personality change [Not Recovered/Not Resolved]
  - Confusional state [Recovering/Resolving]
  - Infection susceptibility increased [Not Recovered/Not Resolved]
